FAERS Safety Report 4969205-5 (Version None)
Quarter: 2006Q2

REPORT INFORMATION
  Report Type: 
  Country: None (occurrence: None)
  Receive Date: 20060405
  Receipt Date: 20060329
  Transmission Date: 20061013
  Serious: Yes (Hospitalization)
  Sender: FDA-Public Use
  Company Number: US-2005-022599

PATIENT
  Age: 53 Year
  Sex: Female
  Weight: 68 kg

DRUGS (11)
  1. BETASERON [Suspect]
     Indication: RELAPSING-REMITTING MULTIPLE SCLEROSIS
     Dosage: 8 MUI, EVERY 2D, SUBCUTANEOUS
     Route: 058
     Dates: start: 19940101, end: 19940101
  2. ANTIVERT ^PFIZER^ (MECLOZINE HYDROCHLORIDE) [Concomitant]
  3. TEGRETOL [Concomitant]
  4. DIAZEPAM [Concomitant]
  5. ELAVIL [Concomitant]
  6. DITROPAN [Concomitant]
  7. ZANTAC [Concomitant]
  8. PREDNISONE [Concomitant]
  9. NAPROXEN [Concomitant]
  10. COMPAZINE (PROCHLOPERAZINE EDISYLATE) [Concomitant]
  11. CAFERGOT [Concomitant]

REACTIONS (5)
  - FALL [None]
  - INJECTION SITE SCAR [None]
  - INJECTION SITE ULCER [None]
  - MULTIPLE SCLEROSIS [None]
  - UNEVALUABLE EVENT [None]
